FAERS Safety Report 9435686 (Version 1)
Quarter: 2013Q3

REPORT INFORMATION
  Report Type: Spontaneous
  Country: US (occurrence: US)
  Receive Date: 20130801
  Receipt Date: 20130801
  Transmission Date: 20140515
  Serious: Yes (Death, Hospitalization, Other)
  Sender: FDA-Public Use
  Company Number: US-TEVA-422395USA

PATIENT
  Sex: 0

DRUGS (1)
  1. CLOZAPINE [Suspect]

REACTIONS (1)
  - Death [Fatal]
